FAERS Safety Report 7346732-7 (Version None)
Quarter: 2011Q1

REPORT INFORMATION
  Report Type: 
  Country: None (occurrence: None)
  Receive Date: 20110311
  Receipt Date: 20110304
  Transmission Date: 20110831
  Serious: Yes (Other)
  Sender: FDA-Public Use
  Company Number: US-BRISTOL-MYERS SQUIBB COMPANY-15589849

PATIENT
  Age: 59 Year
  Sex: Female

DRUGS (3)
  1. TORISEL [Suspect]
     Indication: ENDOMETRIAL CANCER
     Dosage: ON DAY 1 + 8 OF 21 DAY CYCLEX 6 CYCLES SOL FOR INF LAST DS:11NOV10
     Route: 042
     Dates: start: 20101013
  2. PACLITAXEL [Suspect]
     Indication: ENDOMETRIAL CANCER
     Dosage: OVER 135MG/M2 OVER 3 HRS ON DAY 1 OF 21 DAY CYCLEX 6 CYC LAST DOSE:4NOV10(CYC:2,DY1)
     Route: 042
     Dates: start: 20101013
  3. CARBOPLATIN [Suspect]
     Indication: ENDOMETRIAL CANCER
     Dosage: 1 DF=AUC EQUALIZING 5 OVER 30 MIN ON DAY 1 OF 21 CYCLEX 6 CYC LAST DS:4NOV10(CYC:2,DY1)
     Route: 042
     Dates: start: 20101013

REACTIONS (1)
  - HYPERURICAEMIA [None]
